FAERS Safety Report 6696485-0 (Version None)
Quarter: 2010Q2

REPORT INFORMATION
  Report Type: 
  Country: None (occurrence: None)
  Receive Date: 20100426
  Receipt Date: 20090304
  Transmission Date: 20101027
  Serious: No
  Sender: FDA-Public Use
  Company Number: A0772372A

PATIENT
  Sex: Male

DRUGS (1)
  1. ZOFRAN [Suspect]
     Dosage: 8MG PER DAY
     Route: 048

REACTIONS (1)
  - DRUG INEFFECTIVE [None]
